FAERS Safety Report 17263964 (Version 1)
Quarter: 2019Q4

REPORT INFORMATION
  Report Type: Spontaneous
  Country: US (occurrence: US)
  Receive Date: 20191219
  Receipt Date: 20191219
  Transmission Date: 20200122
  Serious: No
  Sender: FDA-Public Use
  Company Number: None

PATIENT
  Age: 73 Year
  Sex: Female

DRUGS (1)
  1. FORTEO [Suspect]
     Active Substance: TERIPARATIDE
     Route: 058
     Dates: start: 20180731

REACTIONS (4)
  - Skin disorder [None]
  - Pain in extremity [None]
  - Tenderness [None]
  - Peripheral swelling [None]

NARRATIVE: CASE EVENT DATE: 20191204
